FAERS Safety Report 21545595 (Version 1)
Quarter: 2022Q4

REPORT INFORMATION
  Report Type: Spontaneous
  Country: US (occurrence: US)
  Receive Date: 20221103
  Receipt Date: 20221103
  Transmission Date: 20230113
  Serious: No
  Sender: FDA-Public Use
  Company Number: US-002147023-NVSC2022US247086

PATIENT
  Sex: Female

DRUGS (1)
  1. LEQVIO [Suspect]
     Active Substance: INCLISIRAN SODIUM
     Indication: Low density lipoprotein decreased
     Dosage: 284 MG (INJECTED DAY 1, THEN AGAIN AT MONTH 3)
     Route: 058
     Dates: start: 20220720

REACTIONS (2)
  - Pruritus [Unknown]
  - Erythema [Unknown]
